FAERS Safety Report 25156894 (Version 2)
Quarter: 2025Q2

REPORT INFORMATION
  Report Type: Spontaneous
  Country: US (occurrence: US)
  Receive Date: 20250403
  Receipt Date: 20250505
  Transmission Date: 20250717
  Serious: Yes (Disabling, Other)
  Sender: AMGEN
  Company Number: US-AMGEN-USASP2025061709

PATIENT
  Age: 65 Year
  Sex: Female

DRUGS (35)
  1. TEPEZZA [Suspect]
     Active Substance: TEPROTUMUMAB-TRBW
     Indication: Graves^ disease
     Dosage: UNK, Q3WK
     Route: 040
     Dates: start: 20200820, end: 20201202
  2. TEPEZZA [Suspect]
     Active Substance: TEPROTUMUMAB-TRBW
     Indication: Endocrine ophthalmopathy
  3. DORZOLAMIDE [Concomitant]
     Active Substance: DORZOLAMIDE
     Dosage: 1 DROP, BID (22.3-6.8 MG/ML)
     Route: 047
     Dates: start: 20191206, end: 20210126
  4. LATANOPROST [Concomitant]
     Active Substance: LATANOPROST
     Dosage: 1 DROP, QD (NIGHTLY) (0.005 %)
     Route: 047
     Dates: start: 20191206, end: 20201130
  5. FLUTICASONE PROPIONATE [Concomitant]
     Active Substance: FLUTICASONE PROPIONATE
     Dosage: UNK UNK, BID (50 MCG/ACT) (USE 1 SPRAY)
     Route: 045
     Dates: start: 20200330, end: 20220216
  6. METHIMAZOLE [Concomitant]
     Active Substance: METHIMAZOLE
     Dosage: 5 MILLIGRAM, QD
     Route: 048
     Dates: start: 20200705, end: 20201103
  7. METOCLOPRAMIDE HYDROCHLORIDE [Concomitant]
     Active Substance: METOCLOPRAMIDE HYDROCHLORIDE
     Indication: Nausea
     Dosage: 5 MILLIGRAM, TID
     Route: 048
     Dates: start: 20201009, end: 20220216
  8. LOSARTAN POTASSIUM [Concomitant]
     Active Substance: LOSARTAN POTASSIUM
     Indication: Essential hypertension
     Dosage: 50 MILLIGRAM, QD
     Route: 048
     Dates: start: 20201022, end: 20211021
  9. HYDROCHLOROTHIAZIDE\TRIAMTERENE [Concomitant]
     Active Substance: HYDROCHLOROTHIAZIDE\TRIAMTERENE
     Indication: Essential hypertension
     Dosage: 125 MILLIGRAM, QD
     Route: 048
     Dates: start: 20201022, end: 20211021
  10. PANTOPRAZOLE SODIUM [Concomitant]
     Active Substance: PANTOPRAZOLE SODIUM
     Indication: Gastrooesophageal reflux disease
     Dosage: 40 MILLIGRAM, QD
     Route: 048
     Dates: start: 20201022, end: 20211021
  11. SERTRALINE HYDROCHLORIDE [Concomitant]
     Active Substance: SERTRALINE HYDROCHLORIDE
     Indication: Major depression
     Dosage: 100 MILLIGRAM, QD (NIGHTLY)
     Route: 048
     Dates: start: 20201022, end: 20210601
  12. Fluzone High Dose Quadrivalent [Concomitant]
     Route: 065
     Dates: start: 20200921, end: 20201022
  13. VITAMIN D [Concomitant]
     Active Substance: VITAMIN D NOS
     Indication: Osteopenia
     Route: 065
  14. VITAMIN D [Concomitant]
     Active Substance: VITAMIN D NOS
     Indication: Vitamin D deficiency
  15. Pneumococcal vaccine polysacch [Concomitant]
     Route: 065
     Dates: start: 20201022
  16. ATORVASTATIN CALCIUM [Concomitant]
     Active Substance: ATORVASTATIN CALCIUM
     Dosage: 10 MILLIGRAM, QD
     Route: 048
     Dates: start: 20201221, end: 20211021
  17. COSOPT [Concomitant]
     Active Substance: DORZOLAMIDE HYDROCHLORIDE\TIMOLOL MALEATE
     Dosage: 1 DROP, BID (22.3-6.8 MG/ML OPHTHALMIC SOLUTION)
     Route: 047
     Dates: start: 20210126, end: 20210722
  18. XALATAN [Concomitant]
     Active Substance: LATANOPROST
     Dosage: 1 DROP, BID (0.005 % OPHTHALMIC SOLUTION )
     Route: 047
     Dates: start: 20210126, end: 20210722
  19. AMOXICILLIN\CLAVULANATE POTASSIUM [Concomitant]
     Active Substance: AMOXICILLIN\CLAVULANATE POTASSIUM
     Dosage: 1000 MILLIGRAM, BID (FOR 7 DAYS) (875-125 MG)
     Route: 048
  20. SYSTANE (HYPROMELLOSE 2910 (4000 MPA.S)) [Concomitant]
     Active Substance: HYPROMELLOSE 2910 (4000 MPA.S)
     Indication: Dry eye
     Route: 047
  21. CIPRO [Concomitant]
     Active Substance: CIPROFLOXACIN HYDROCHLORIDE
     Dosage: 500 MILLIGRAM, BID
     Route: 048
     Dates: start: 20210517, end: 20211122
  22. GABAPENTIN [Concomitant]
     Active Substance: GABAPENTIN
     Route: 048
     Dates: start: 20210707, end: 20211217
  23. ERGOCALCIFEROL [Concomitant]
     Active Substance: ERGOCALCIFEROL
     Dosage: 50000 UNIT, QWK (1.25 MG)
     Route: 048
     Dates: start: 20211024, end: 20220222
  24. NORCO [Concomitant]
     Active Substance: ACETAMINOPHEN\HYDROCODONE BITARTRATE
     Dosage: 330 MILLIGRAM, Q4H
     Route: 048
     Dates: start: 20211112, end: 20220216
  25. ESCITALOPRAM OXALATE [Concomitant]
     Active Substance: ESCITALOPRAM OXALATE
     Route: 048
     Dates: start: 20220222, end: 20220222
  26. ASPIRIN [Concomitant]
     Active Substance: ASPIRIN
     Dosage: 325 MILLIGRAM, QD
     Route: 048
     Dates: start: 20220203, end: 20220228
  27. FERROUS SULFATE [Concomitant]
     Active Substance: FERROUS SULFATE
     Dosage: 325 MILLIGRAM, BID
     Route: 048
     Dates: start: 20220109, end: 20220409
  28. BACTRIM DS [Concomitant]
     Active Substance: SULFAMETHOXAZOLE\TRIMETHOPRIM
     Route: 048
     Dates: start: 20220204, end: 20220306
  29. MIRALAX [Concomitant]
     Active Substance: POLYETHYLENE GLYCOL 3350
     Dosage: 17 GRAM, QD
     Route: 048
     Dates: start: 20221101
  30. GOLYTELY [Concomitant]
     Active Substance: POLYETHYLENE GLYCOL 3350\POTASSIUM CHLORIDE\SODIUM BICARBONATE\SODIUM CHLORIDE\SODIUM SULFATE
     Route: 048
     Dates: start: 20221101
  31. Dulcolax [Concomitant]
     Route: 065
     Dates: start: 20221101
  32. XIIDRA [Concomitant]
     Active Substance: LIFITEGRAST
     Dosage: 1 DROP, QD
     Route: 047
     Dates: start: 20230120
  33. DULOXETINE HYDROCHLORIDE [Concomitant]
     Active Substance: DULOXETINE HYDROCHLORIDE
     Dosage: 30 MILLIGRAM, QD
     Route: 048
  34. COZAAR [Concomitant]
     Active Substance: LOSARTAN POTASSIUM
     Dosage: 100 MILLIGRAM, QD
     Route: 048
  35. Artificial tears [Concomitant]
     Route: 065

REACTIONS (37)
  - Deafness permanent [Not Recovered/Not Resolved]
  - Endocrine ophthalmopathy [Unknown]
  - Graves^ disease [Unknown]
  - Type 2 diabetes mellitus [Unknown]
  - Major depression [Unknown]
  - Femur fracture [Unknown]
  - Pain [Unknown]
  - Emotional distress [Unknown]
  - Anxiety [Unknown]
  - Impaired quality of life [Unknown]
  - Discomfort [Unknown]
  - Tinnitus [Not Recovered/Not Resolved]
  - Product use complaint [Unknown]
  - Obesity [Unknown]
  - Type V hyperlipidaemia [Unknown]
  - Gastrooesophageal reflux disease [Unknown]
  - Osteopenia [Unknown]
  - Vitamin D deficiency [Unknown]
  - Arthralgia [Unknown]
  - Insomnia [Unknown]
  - Headache [Unknown]
  - Diarrhoea [Recovered/Resolved]
  - Muscle spasms [Not Recovered/Not Resolved]
  - Back pain [Unknown]
  - Oral discomfort [Unknown]
  - Taste disorder [Unknown]
  - Oropharyngeal pain [Unknown]
  - Abdominal pain upper [Unknown]
  - Dry mouth [Recovered/Resolved]
  - Therapy interrupted [Unknown]
  - Vertigo [Unknown]
  - Balance disorder [Unknown]
  - Dizziness [Not Recovered/Not Resolved]
  - Vestibular disorder [Unknown]
  - Anaemia [Unknown]
  - Infection [Unknown]
  - Gait disturbance [Unknown]

NARRATIVE: CASE EVENT DATE: 20200101
